FAERS Safety Report 25703798 (Version 1)
Quarter: 2025Q3

REPORT INFORMATION
  Report Type: Spontaneous
  Country: EU (occurrence: EU)
  Receive Date: 20250820
  Receipt Date: 20250820
  Transmission Date: 20251021
  Serious: Yes (Other)
  Sender: BRISTOL-MYERS SQUIBB COMPANY
  Company Number: EU-BRISTOL-MYERS SQUIBB COMPANY-2024-189963

PATIENT
  Age: 71 Year
  Sex: Female

DRUGS (4)
  1. LENALIDOMIDE [Suspect]
     Active Substance: LENALIDOMIDE
     Indication: POEMS syndrome
     Dates: start: 2022
  2. LENALIDOMIDE [Suspect]
     Active Substance: LENALIDOMIDE
  3. TOLODODEKIN ALFA [Concomitant]
     Active Substance: TOLODODEKIN ALFA
     Indication: POEMS syndrome
     Dates: start: 2022
  4. DEXAMETHASONE [Concomitant]
     Active Substance: DEXAMETHASONE
     Indication: POEMS syndrome

REACTIONS (3)
  - Neutropenia [Recovering/Resolving]
  - Off label use [Unknown]
  - Haematotoxicity [Unknown]
